FAERS Safety Report 6433169-8 (Version None)
Quarter: 2009Q4

REPORT INFORMATION
  Report Type: 
  Country: None (occurrence: None)
  Receive Date: 20091109
  Receipt Date: 20091026
  Transmission Date: 20100525
  Serious: Yes (Hospitalization)
  Sender: FDA-Public Use
  Company Number: PHHY2009DE46873

PATIENT
  Age: 80 Year
  Sex: Female
  Weight: 100 kg

DRUGS (6)
  1. CARBAMAZEPINE [Suspect]
     Dosage: 200 MG, QD
     Route: 048
     Dates: end: 20090721
  2. METOPROLOL [Concomitant]
     Indication: HYPERTENSION
     Dosage: 50 MG, BID
     Route: 048
  3. NIFEDIPINE [Concomitant]
     Indication: HYPERTENSION
     Dosage: 10 MG, BID
     Route: 048
  4. OMEPRAZOLE [Concomitant]
     Indication: PROPHYLAXIS AGAINST GASTROINTESTINAL ULCER
     Dosage: 20 MG, QD
     Route: 048
     Dates: start: 20090630
  5. ENALAPRIL W/HYDROCHLOROTHIAZIDE [Concomitant]
     Indication: HYPERTENSION
     Dosage: 1 DF (10 MG ENALAPRIL + 25 MG HYDROCHLOROTHIAZIDE
     Route: 048
     Dates: start: 20090721
  6. TORASEMIDE [Concomitant]
     Indication: HYPERTENSION
     Dosage: 2.5 MG, UNK
     Route: 048

REACTIONS (12)
  - BLOOD CORTISOL INCREASED [None]
  - BLOOD CREATININE INCREASED [None]
  - BLOOD OSMOLARITY DECREASED [None]
  - C-REACTIVE PROTEIN INCREASED [None]
  - CHEST PAIN [None]
  - DIZZINESS [None]
  - HEART RATE INCREASED [None]
  - HYPERTENSION [None]
  - HYPONATRAEMIA [None]
  - INAPPROPRIATE ANTIDIURETIC HORMONE SECRETION [None]
  - SPINAL OSTEOARTHRITIS [None]
  - VERTIGO [None]
